FAERS Safety Report 7562151-2 (Version None)
Quarter: 2011Q2

REPORT INFORMATION
  Report Type: 
  Country: None (occurrence: None)
  Receive Date: 20110614
  Receipt Date: 20110531
  Transmission Date: 20111010
  Serious: Yes (Hospitalization, Other)
  Sender: FDA-Public Use
  Company Number: 2011MA006578

PATIENT
  Age: 76 Year
  Sex: Female

DRUGS (4)
  1. ATENOLOL [Concomitant]
  2. HYDROCHLOROTHIAZDE TAB [Suspect]
  3. NITROFURANTOIN [Concomitant]
  4. NIFEDIPINE [Concomitant]

REACTIONS (12)
  - DIARRHOEA [None]
  - OEDEMA PERIPHERAL [None]
  - HYPONATRAEMIA [None]
  - CONFUSIONAL STATE [None]
  - VOMITING [None]
  - COMMUNICATION DISORDER [None]
  - TREMOR [None]
  - BLOOD POTASSIUM DECREASED [None]
  - BLOOD URINE PRESENT [None]
  - CYSTITIS [None]
  - HYPOAESTHESIA [None]
  - DELIRIUM [None]
